FAERS Safety Report 8505244-5 (Version None)
Quarter: 2012Q3

REPORT INFORMATION
  Report Type: 
  Country: None (occurrence: None)
  Receive Date: 20120712
  Receipt Date: 20120709
  Transmission Date: 20120928
  Serious: Yes (Death)
  Sender: FDA-Public Use
  Company Number: IE-PFIZER INC-2012164680

PATIENT
  Age: 42 Year
  Sex: Male

DRUGS (1)
  1. ZYVOX [Suspect]
     Indication: SEPSIS
     Dosage: UNK
     Dates: start: 20120101

REACTIONS (1)
  - DRUG INEFFECTIVE [None]
